FAERS Safety Report 21569292 (Version 1)
Quarter: 2022Q4

REPORT INFORMATION
  Report Type: Other
  Country: None (occurrence: ES)
  Receive Date: 20221109
  Receipt Date: 20221109
  Transmission Date: 20230113
  Serious: Yes (Hospitalization)
  Sender: FDA-Public Use
  Company Number: ES-OrBion Pharmaceuticals Private Limited-2134668

PATIENT
  Age: 34 Year
  Sex: Female

DRUGS (3)
  1. VENLAFAXINE HYDROCHLORIDE [Suspect]
     Active Substance: VENLAFAXINE HYDROCHLORIDE
     Route: 065
  2. CLORAZEPATE DIPOTASSIUM [Suspect]
     Active Substance: CLORAZEPATE DIPOTASSIUM
     Route: 065
  3. ETHYLENE GLYCOL [Suspect]
     Active Substance: ETHYLENE GLYCOL
     Route: 065

REACTIONS (10)
  - Renal failure [Recovered/Resolved]
  - Metabolic acidosis [Recovered/Resolved]
  - Hyperventilation [Recovered/Resolved]
  - Slow response to stimuli [Recovered/Resolved]
  - Lethargy [Recovered/Resolved]
  - Intentional overdose [Recovered/Resolved]
  - Antidepressant drug level above therapeutic [Recovered/Resolved]
  - Poisoning [Recovered/Resolved]
  - Drug level above therapeutic [Recovered/Resolved]
  - Suicide attempt [Recovered/Resolved]
